FAERS Safety Report 21815311 (Version 1)
Quarter: 2023Q1

REPORT INFORMATION
  Report Type: Spontaneous
  Country: SG (occurrence: SG)
  Receive Date: 20230104
  Receipt Date: 20230104
  Transmission Date: 20230418
  Serious: Yes (Hospitalization, Other)
  Sender: FDA-Public Use
  Company Number: SG-UCBSA-2023000240

PATIENT
  Age: 15 Year
  Sex: Male

DRUGS (6)
  1. LEVETIRACETAM [Suspect]
     Active Substance: LEVETIRACETAM
     Indication: Febrile infection-related epilepsy syndrome
     Dosage: UNK
  2. CLOBAZAM [Suspect]
     Active Substance: CLOBAZAM
     Indication: Febrile infection-related epilepsy syndrome
  3. METHYLPREDNISOLONE [Suspect]
     Active Substance: METHYLPREDNISOLONE
     Indication: Haemophagocytic lymphohistiocytosis
  4. MIDAZOLAM [Suspect]
     Active Substance: MIDAZOLAM
     Indication: Febrile infection-related epilepsy syndrome
  5. PHENOBARBITAL SODIUM [Suspect]
     Active Substance: PHENOBARBITAL SODIUM
     Indication: Febrile infection-related epilepsy syndrome
  6. PHENYTOIN [Suspect]
     Active Substance: PHENYTOIN
     Indication: Febrile infection-related epilepsy syndrome

REACTIONS (10)
  - Inflammation [Unknown]
  - Rash maculo-papular [Unknown]
  - Hypertransaminasaemia [Unknown]
  - Splenomegaly [Unknown]
  - Pyrexia [Unknown]
  - Serum ferritin increased [Unknown]
  - Natural killer cell activity abnormal [Unknown]
  - Haemophagocytic lymphohistiocytosis [Unknown]
  - Status epilepticus [Unknown]
  - Drug ineffective [Unknown]
